FAERS Safety Report 17767231 (Version 2)
Quarter: 2020Q4

REPORT INFORMATION
  Report Type: Report from Study
  Country: CA (occurrence: CA)
  Receive Date: 20200511
  Receipt Date: 20201007
  Transmission Date: 20210113
  Serious: Yes (Other)
  Sender: FDA-Public Use
  Company Number: CA-JNJFOC-20200400704

PATIENT
  Age: 35 Year
  Sex: Male
  Weight: 76.2 kg

DRUGS (3)
  1. STELARA [Suspect]
     Active Substance: USTEKINUMAB
     Dosage: THE PATIENT RECEIVED 04TH 90 MG INJECTION ON 01/APR/2020.
     Route: 058
     Dates: start: 20200401, end: 20200826
  2. QUETIAPINE. [Concomitant]
     Active Substance: QUETIAPINE
     Indication: PRODUCT USED FOR UNKNOWN INDICATION
     Route: 065
  3. STELARA [Suspect]
     Active Substance: USTEKINUMAB
     Indication: CROHN^S DISEASE
     Route: 058
     Dates: start: 20191016

REACTIONS (15)
  - Diarrhoea [Unknown]
  - Headache [Unknown]
  - Frequent bowel movements [Unknown]
  - Malaise [Not Recovered/Not Resolved]
  - Off label use [Unknown]
  - Haematochezia [Unknown]
  - Abdominal pain [Unknown]
  - Rectal discharge [Unknown]
  - Pyrexia [Unknown]
  - Constipation [Unknown]
  - Anorectal discomfort [Unknown]
  - Muscle twitching [Unknown]
  - Product use issue [Unknown]
  - Cough [Unknown]
  - Gastrointestinal inflammation [Unknown]

NARRATIVE: CASE EVENT DATE: 2020
